FAERS Safety Report 5451621-9 (Version None)
Quarter: 2007Q3

REPORT INFORMATION
  Report Type: 
  Country: None (occurrence: None)
  Receive Date: 20070913
  Receipt Date: 20070910
  Transmission Date: 20080115
  Serious: Yes (Life-Threatening, Hospitalization)
  Sender: FDA-Public Use
  Company Number: JP-BOEHRINGER INGELHEIM PHARMACEUTICALS, INC.-2007-BP-19747NB

PATIENT
  Sex: Female

DRUGS (10)
  1. MICARDIS [Suspect]
     Indication: HYPERTENSION
     Route: 048
  2. KAKKON-TO [Concomitant]
     Route: 048
  3. EPHEDRA TEAS [Concomitant]
     Route: 048
  4. MERISLON [Concomitant]
     Route: 048
  5. AMLODIPINE [Concomitant]
     Route: 048
  6. VOLTAREN [Concomitant]
     Route: 062
  7. PRAVASTATIN [Concomitant]
     Route: 048
  8. METHYCOBAL [Concomitant]
     Route: 048
  9. OPALMON [Concomitant]
     Route: 048
  10. GASMOTIN [Concomitant]
     Route: 048

REACTIONS (1)
  - PANCYTOPENIA [None]
